FAERS Safety Report 4566000-6 (Version None)
Quarter: 2005Q1

REPORT INFORMATION
  Report Type: 
  Country: None (occurrence: None)
  Receive Date: 20050128
  Receipt Date: 20050112
  Transmission Date: 20050727
  Serious: Yes (Life-Threatening, Hospitalization)
  Sender: FDA-Public Use
  Company Number: IBF20050003

PATIENT
  Age: 10 Year
  Sex: Female

DRUGS (1)
  1. IBUPROFEN [Suspect]
     Indication: PYREXIA
     Dosage: PO
     Route: 048
     Dates: start: 20010101, end: 20010101

REACTIONS (7)
  - ARTHRALGIA [None]
  - CHOLESTASIS [None]
  - DRUG INTOLERANCE [None]
  - HEPATITIS [None]
  - NASOPHARYNGITIS [None]
  - STEVENS-JOHNSON SYNDROME [None]
  - VANISHING BILE DUCT SYNDROME [None]
